FAERS Safety Report 9131255 (Version 1)
Quarter: 2013Q1

REPORT INFORMATION
  Report Type: Spontaneous
  Country: US (occurrence: US)
  Receive Date: 20130301
  Receipt Date: 20130301
  Transmission Date: 20140127
  Serious: Yes (Death, Other)
  Sender: FDA-Public Use
  Company Number: PHHY2013US020229

PATIENT
  Sex: Female

DRUGS (1)
  1. LAMOTRIGINE [Suspect]

REACTIONS (2)
  - Toxicity to various agents [Fatal]
  - Intentional overdose [Unknown]
